FAERS Safety Report 6309083-5 (Version None)
Quarter: 2009Q3

REPORT INFORMATION
  Report Type: 
  Country: None (occurrence: None)
  Receive Date: 20090814
  Receipt Date: 20070620
  Transmission Date: 20100115
  Serious: Yes (Other)
  Sender: FDA-Public Use
  Company Number: US-ASTRAZENECA-2006UW25968

PATIENT
  Age: 480 Month
  Sex: Female
  Weight: 127.1 kg

DRUGS (24)
  1. SEROQUEL [Suspect]
     Indication: SCHIZOPHRENIA
     Route: 048
     Dates: start: 19930101, end: 20030901
  2. SEROQUEL [Suspect]
     Indication: BIPOLAR DISORDER
     Route: 048
     Dates: start: 19930101, end: 20030901
  3. SEROQUEL [Suspect]
     Indication: DEPRESSION
     Route: 048
     Dates: start: 19930101, end: 20030901
  4. SEROQUEL [Suspect]
     Dosage: 50-100 MG
     Route: 048
     Dates: start: 20040302
  5. SEROQUEL [Suspect]
     Dosage: 50-100 MG
     Route: 048
     Dates: start: 20040302
  6. SEROQUEL [Suspect]
     Dosage: 50-100 MG
     Route: 048
     Dates: start: 20040302
  7. ABILIFY [Concomitant]
  8. GEODON [Concomitant]
  9. AMBIEN [Concomitant]
     Dates: start: 20040101, end: 20061101
  10. NEURONTIN [Concomitant]
     Dates: start: 20040101, end: 20061101
  11. NEURONTIN [Concomitant]
     Dosage: 1800-3000 MG
     Dates: start: 20040302
  12. TEGRETOL [Concomitant]
     Indication: CONVULSION
     Dates: start: 19931124, end: 20030101
  13. TEGRETOL [Concomitant]
     Dosage: 200 MG HALF TID TIMES 1 WEEK, 1 TID
     Dates: start: 20030226
  14. DEPAKOTE [Concomitant]
     Indication: CONVULSION
     Dates: start: 19931124
  15. REMERON [Concomitant]
     Indication: DEPRESSION
     Dates: start: 19980114
  16. REMERON [Concomitant]
     Indication: ANXIETY
     Dates: start: 19980114
  17. REMERON [Concomitant]
     Indication: INSOMNIA
     Dates: start: 19980114
  18. REMERON [Concomitant]
     Indication: APPETITE DISORDER
     Dates: start: 19980114
  19. NEXIUM [Concomitant]
     Indication: GASTROOESOPHAGEAL REFLUX DISEASE
     Dates: start: 20030226
  20. DARVOCET [Concomitant]
     Indication: PAIN
     Dosage: 1 EVERY 44 HOURS PRN
     Dates: start: 20040302
  21. RITALIN [Concomitant]
     Dosage: 20 MG, 10 MG AM, 15 MG PM, 10 MG AFTERNOON
     Dates: start: 20030226
  22. AMITRIPTYLINE [Concomitant]
     Dates: start: 20030226
  23. CELEXA [Concomitant]
     Dosage: 20-60 MG
     Dates: start: 20030226
  24. CLONIDINE [Concomitant]
     Dosage: 0.1-0.3 MG
     Dates: start: 20040302

REACTIONS (5)
  - DIABETES MELLITUS [None]
  - GLUCOSE TOLERANCE IMPAIRED [None]
  - NEUROPATHY PERIPHERAL [None]
  - PANCREATITIS [None]
  - TYPE 2 DIABETES MELLITUS [None]
